FAERS Safety Report 12196989 (Version 1)
Quarter: 2016Q1

REPORT INFORMATION
  Report Type: Report from Study
  Country: US (occurrence: US)
  Receive Date: 20160321
  Receipt Date: 20160321
  Transmission Date: 20160526
  Serious: Yes (Other)
  Sender: FDA-Public Use
  Company Number: US-BIOGEN-2013BI115716

PATIENT
  Age: 48 Year
  Sex: Female

DRUGS (2)
  1. TECFIDERA [Suspect]
     Active Substance: DIMETHYL FUMARATE
     Dates: start: 2014
  2. TECFIDERA [Suspect]
     Active Substance: DIMETHYL FUMARATE
     Indication: MULTIPLE SCLEROSIS
     Route: 065
     Dates: start: 2013

REACTIONS (44)
  - Renal disorder [Unknown]
  - Hemiplegia [Unknown]
  - White blood cell count increased [Unknown]
  - Lower limb fracture [Recovered/Resolved]
  - Mobility decreased [Recovered/Resolved]
  - Dysphemia [Not Recovered/Not Resolved]
  - Anxiety [Not Recovered/Not Resolved]
  - Dysstasia [Recovered/Resolved]
  - Mental disorder [Recovered/Resolved]
  - Fear of falling [Not Recovered/Not Resolved]
  - Bradyphrenia [Not Recovered/Not Resolved]
  - Arthropathy [Not Recovered/Not Resolved]
  - Nervousness [Not Recovered/Not Resolved]
  - Fear [Not Recovered/Not Resolved]
  - Laceration [Recovered/Resolved]
  - Dysphagia [Recovered/Resolved]
  - Central nervous system lesion [Not Recovered/Not Resolved]
  - Gait disturbance [Unknown]
  - Tremor [Not Recovered/Not Resolved]
  - Parkinson^s disease [Not Recovered/Not Resolved]
  - Conjunctivitis [Recovered/Resolved]
  - Malaise [Not Recovered/Not Resolved]
  - Abasia [Recovered/Resolved]
  - Insomnia [Recovered/Resolved]
  - Depression [Not Recovered/Not Resolved]
  - Asthenia [Not Recovered/Not Resolved]
  - Eye disorder [Not Recovered/Not Resolved]
  - Fall [Recovered/Resolved]
  - Weight decreased [Recovered/Resolved]
  - Drug ineffective [Unknown]
  - Liver disorder [Unknown]
  - Pyrexia [Unknown]
  - Muscle spasms [Recovered/Resolved]
  - Balance disorder [Not Recovered/Not Resolved]
  - Pain in extremity [Not Recovered/Not Resolved]
  - Muscle atrophy [Not Recovered/Not Resolved]
  - Feeling abnormal [Recovered/Resolved]
  - Sleep talking [Recovered/Resolved]
  - Migraine [Recovered/Resolved]
  - Multiple sclerosis relapse [Not Recovered/Not Resolved]
  - Apparent death [Recovered/Resolved]
  - Cold sweat [Not Recovered/Not Resolved]
  - Headache [Recovered/Resolved]
  - Rash [Recovered/Resolved]

NARRATIVE: CASE EVENT DATE: 20131122
